FAERS Safety Report 22136727 (Version 1)
Quarter: 2023Q1

REPORT INFORMATION
  Report Type: Spontaneous
  Country: IT (occurrence: IT)
  Receive Date: 20230324
  Receipt Date: 20230324
  Transmission Date: 20230417
  Serious: Yes (Other)
  Sender: FDA-Public Use
  Company Number: IT-002147023-NVSC2023IT067251

PATIENT
  Age: 65 Year
  Sex: Female

DRUGS (2)
  1. DABRAFENIB [Suspect]
     Active Substance: DABRAFENIB
     Indication: Acral lentiginous melanoma stage III
     Dosage: UNK
     Route: 065
     Dates: start: 201911, end: 202011
  2. TRAMETINIB [Suspect]
     Active Substance: TRAMETINIB
     Indication: Acral lentiginous melanoma stage III
     Dosage: UNK
     Route: 065
     Dates: start: 201911, end: 202011

REACTIONS (1)
  - Granulomatous lymphadenitis [Recovering/Resolving]

NARRATIVE: CASE EVENT DATE: 20200701
